FAERS Safety Report 14951563 (Version 3)
Quarter: 2018Q3

REPORT INFORMATION
  Report Type: Spontaneous
  Country: SE (occurrence: SE)
  Receive Date: 20180530
  Receipt Date: 20180807
  Transmission Date: 20181010
  Serious: Yes (Other)
  Sender: FDA-Public Use
  Company Number: SE-PFIZER INC-2018218066

PATIENT
  Age: 64 Year
  Sex: Male

DRUGS (1)
  1. OXALIPLATIN. [Suspect]
     Active Substance: OXALIPLATIN
     Indication: PANCREATIC CARCINOMA
     Dosage: 15 ML, UNK
     Route: 042

REACTIONS (4)
  - Dyspnoea [Unknown]
  - Throat irritation [Unknown]
  - Flushing [Unknown]
  - Pruritus [Unknown]

NARRATIVE: CASE EVENT DATE: 20170418
